FAERS Safety Report 8125055-2 (Version None)
Quarter: 2012Q1

REPORT INFORMATION
  Report Type: 
  Country: None (occurrence: None)
  Receive Date: 20120209
  Receipt Date: 20120207
  Transmission Date: 20120608
  Serious: Yes (Death, Hospitalization)
  Sender: FDA-Public Use
  Company Number: US-SHIRE-ALL1-2011-05062

PATIENT
  Sex: Male

DRUGS (3)
  1. FLOMAX [Concomitant]
     Indication: PRODUCT USED FOR UNKNOWN INDICATION
     Dosage: UNK, UNKNOWN
     Route: 065
  2. CYMBALTA [Concomitant]
     Indication: PRODUCT USED FOR UNKNOWN INDICATION
     Dosage: UNK, UNKNOWN
     Route: 065
  3. VPRIV [Suspect]
     Indication: GAUCHER'S DISEASE
     Dosage: 4400 IU, 1X/2WKS
     Route: 041
     Dates: start: 20100324, end: 20111201

REACTIONS (9)
  - FACIAL BONES FRACTURE [None]
  - EXCORIATION [None]
  - DEATH [None]
  - FALL [None]
  - RIB FRACTURE [None]
  - SUBDURAL HAEMORRHAGE [None]
  - HAEMORRHAGE INTRACRANIAL [None]
  - ULNA FRACTURE [None]
  - SUBARACHNOID HAEMORRHAGE [None]
